FAERS Safety Report 17094994 (Version 2)
Quarter: 2019Q4

REPORT INFORMATION
  Report Type: Report from Study
  Country: FR (occurrence: FR)
  Receive Date: 20191130
  Receipt Date: 20191223
  Transmission Date: 20200122
  Serious: Yes (Other)
  Sender: FDA-Public Use
  Company Number: FR-ACCORD-092105

PATIENT
  Age: 42 Year
  Sex: Female
  Weight: 105 kg

DRUGS (10)
  1. AMYCOR [Concomitant]
     Active Substance: BIFONAZOLE
     Dates: start: 20141007
  2. FOLIC ACID. [Concomitant]
     Active Substance: FOLIC ACID
     Dosage: 10 MG, WEEKLY
     Route: 048
     Dates: start: 201303, end: 20180401
  3. TRINORDIOL [Concomitant]
     Active Substance: ETHINYL ESTRADIOL\LEVONORGESTREL
  4. METHOTREXATE. [Suspect]
     Active Substance: METHOTREXATE
     Indication: PSORIASIS
     Dosage: 20 MG, WEEKLY
     Route: 048
     Dates: start: 201303, end: 20140408
  5. DAIVOBET [Concomitant]
     Active Substance: BETAMETHASONE DIPROPIONATE\CALCIPOTRIENE
     Dates: start: 20141007
  6. FLIXOVATE [Concomitant]
     Active Substance: FLUTICASONE PROPIONATE
  7. PROTOPIC [Concomitant]
     Active Substance: TACROLIMUS
  8. STELARA [Suspect]
     Active Substance: USTEKINUMAB
     Indication: PRODUCT USED FOR UNKNOWN INDICATION
     Dosage: 90 MG, CYCLIC EVERY 4 WEEKS
     Route: 058
     Dates: start: 20180420, end: 20190901
  9. MIRENA [Concomitant]
     Active Substance: LEVONORGESTREL
     Indication: CONTRACEPTION
  10. KETODERM [Concomitant]
     Dates: start: 20160726

REACTIONS (2)
  - Fatigue [Recovered/Resolved]
  - Breast neoplasm [Not Recovered/Not Resolved]

NARRATIVE: CASE EVENT DATE: 201711
